FAERS Safety Report 13973985 (Version 1)
Quarter: 2017Q3

REPORT INFORMATION
  Report Type: Spontaneous
  Country: FR (occurrence: FR)
  Receive Date: 20170915
  Receipt Date: 20170915
  Transmission Date: 20171128
  Serious: Yes (Hospitalization)
  Sender: FDA-Public Use
  Company Number: FR-CONCORDIA PHARMACEUTICALS INC.-GSH201709-005149

PATIENT
  Age: 21 Year
  Sex: Female

DRUGS (1)
  1. PLAQUENIL [Suspect]
     Active Substance: HYDROXYCHLOROQUINE SULFATE
     Indication: SUICIDAL BEHAVIOUR
     Route: 048
     Dates: start: 20170821, end: 20170821

REACTIONS (4)
  - Intentional overdose [Unknown]
  - Blood pressure increased [Recovered/Resolved]
  - Tinnitus [Unknown]
  - Tachycardia [Recovered/Resolved]

NARRATIVE: CASE EVENT DATE: 20170821
